FAERS Safety Report 25062138 (Version 1)
Quarter: 2025Q1

REPORT INFORMATION
  Report Type: Spontaneous
  Country: ES (occurrence: ES)
  Receive Date: 20250311
  Receipt Date: 20250311
  Transmission Date: 20250408
  Serious: Yes (Life-Threatening)
  Sender: CHEPLAPHARM
  Company Number: None

PATIENT
  Age: 82 Year
  Sex: Female

DRUGS (8)
  1. CLONAZEPAM [Suspect]
     Active Substance: CLONAZEPAM
     Indication: Persistent depressive disorder
     Route: 048
     Dates: start: 20240208
  2. HYDROCHLOROTHIAZIDE\VALSARTAN [Suspect]
     Active Substance: HYDROCHLOROTHIAZIDE\VALSARTAN
     Indication: Hypertension
     Route: 048
     Dates: start: 20220217
  3. FUROSEMIDE XANTINOL\TRIAMTERENE [Suspect]
     Active Substance: FUROSEMIDE XANTINOL\TRIAMTERENE
     Indication: Hypertension
     Route: 048
     Dates: start: 20200723
  4. Atorvastatin Stadagen [Concomitant]
     Indication: Hyperlipidaemia
     Route: 048
     Dates: start: 20200416
  5. Carbamazepine Normon [Concomitant]
     Indication: Spinal osteoarthritis
     Route: 048
     Dates: start: 20220602
  6. COSOPT [Concomitant]
     Active Substance: DORZOLAMIDE HYDROCHLORIDE\TIMOLOL MALEATE
     Indication: Cataract
     Route: 047
     Dates: start: 20200625
  7. LEVOTHYROXINE SODIUM [Concomitant]
     Active Substance: LEVOTHYROXINE SODIUM
     Indication: Hypothyroidism
     Route: 048
     Dates: start: 20211130
  8. OMEPRAZOLE [Concomitant]
     Active Substance: OMEPRAZOLE
     Indication: Spinal osteoarthritis
     Route: 048
     Dates: start: 20140819

REACTIONS (3)
  - Hyponatraemia [Not Recovered/Not Resolved]
  - Inappropriate antidiuretic hormone secretion [Not Recovered/Not Resolved]
  - Off label use [Not Recovered/Not Resolved]

NARRATIVE: CASE EVENT DATE: 20240208
